FAERS Safety Report 12249124 (Version 1)
Quarter: 2016Q2

REPORT INFORMATION
  Report Type: Spontaneous
  Country: US (occurrence: US)
  Receive Date: 20160408
  Receipt Date: 20160408
  Transmission Date: 20160815
  Serious: Yes (Other)
  Sender: FDA-Public Use
  Company Number: US-MYLANLABS-2016M1014487

PATIENT

DRUGS (6)
  1. IMMUNE GLOBULIN [Suspect]
     Active Substance: HUMAN IMMUNOGLOBULIN G
     Indication: COMBINED IMMUNODEFICIENCY
     Route: 048
  2. MESNA. [Suspect]
     Active Substance: MESNA
     Indication: COMBINED IMMUNODEFICIENCY
     Dosage: 4DAYS
     Route: 065
  3. IMMUNE GLOBULIN [Suspect]
     Active Substance: HUMAN IMMUNOGLOBULIN G
     Route: 042
  4. BUSULFAN. [Suspect]
     Active Substance: BUSULFAN
     Indication: COMBINED IMMUNODEFICIENCY
     Dosage: 31MG FOR 4DAYS
     Route: 065
  5. CYTOXAN [Suspect]
     Active Substance: CYCLOPHOSPHAMIDE
     Indication: COMBINED IMMUNODEFICIENCY
     Dosage: 400MG FOR 4DAYS
     Route: 065
  6. GLOBULIN [Suspect]
     Active Substance: HUMAN IMMUNOGLOBULIN G
     Indication: COMBINED IMMUNODEFICIENCY
     Dosage: 24MG FOR 1DAY
     Route: 065

REACTIONS (7)
  - Toxicity to various agents [Unknown]
  - Pyrexia [Unknown]
  - Tachycardia [Unknown]
  - Cystitis haemorrhagic [Unknown]
  - Malaise [Unknown]
  - Diarrhoea [Unknown]
  - Pruritus [Unknown]
